FAERS Safety Report 7302940-2 (Version None)
Quarter: 2011Q1

REPORT INFORMATION
  Report Type: 
  Country: None (occurrence: None)
  Receive Date: 20110218
  Receipt Date: 20110214
  Transmission Date: 20110831
  Serious: Yes (Death)
  Sender: FDA-Public Use
  Company Number: US-ASTRAZENECA-2011SE08472

PATIENT
  Age: 73 Year
  Sex: Female
  Weight: 43.5 kg

DRUGS (14)
  1. FAMOTIDINE [Concomitant]
     Indication: ABDOMINAL DISCOMFORT
  2. SIMVASTATIN [Concomitant]
     Indication: HYPERCHOLESTEROLAEMIA
  3. PREDNISONE [Concomitant]
  4. LORAZEPAM [Concomitant]
  5. AMLODIPINE [Concomitant]
     Indication: HYPERTENSION
  6. WARFARIN SODIUM [Concomitant]
     Indication: ANTICOAGULANT THERAPY
  7. ALBUTEROL [Concomitant]
     Dosage: EVERY FOUR HOURS A DAY
  8. LEVOTHYROXINE [Concomitant]
     Indication: THYROID DISORDER
  9. METOPROLOL [Concomitant]
     Indication: HYPERTENSION
  10. POTASSIUM CHLORIDE [Concomitant]
     Dosage: 20 MEQ, BID
  11. SEROQUEL [Suspect]
     Route: 048
     Dates: start: 20101001
  12. PERCOCET [Concomitant]
     Indication: PAIN
     Dosage: 5/325 MG, QID
  13. SEROQUEL [Suspect]
     Indication: ANXIETY
     Route: 048
     Dates: start: 20100801, end: 20101001
  14. FUROSEMIDE [Concomitant]
     Indication: DIURETIC THERAPY

REACTIONS (1)
  - CHRONIC OBSTRUCTIVE PULMONARY DISEASE [None]
